FAERS Safety Report 4489615-2 (Version None)
Quarter: 2004Q4

REPORT INFORMATION
  Report Type: 
  Country: None (occurrence: None)
  Receive Date: 20041026
  Receipt Date: 20041011
  Transmission Date: 20050328
  Serious: Yes (Other)
  Sender: FDA-Public Use
  Company Number: GBS041015744

PATIENT
  Age: 4 Month
  Sex: Male

DRUGS (1)
  1. FLUOXETINE [Suspect]
     Route: 065
     Dates: start: 20040916, end: 20040922

REACTIONS (5)
  - ABDOMINAL PAIN [None]
  - DRUG EXPOSURE VIA BREAST MILK [None]
  - FLATULENCE [None]
  - IRRITABILITY [None]
  - SLEEP DISORDER [None]
